FAERS Safety Report 8857791 (Version 1)
Quarter: 2012Q4

REPORT INFORMATION
  Report Type: 
  Country: DE (occurrence: DE)
  Receive Date: 20121024
  Receipt Date: 20121024
  Transmission Date: 20130627
  Serious: Yes (Life-Threatening, Hospitalization)
  Sender: FDA-Public Use
  Company Number: DE-B.I. PHARMACEUTICALS,INC./RIDGEFIELD-2012-DE-02106DE

PATIENT
  Age: 25 Year
  Sex: Male
  Weight: 67 kg

DRUGS (6)
  1. VIRAMUNE [Suspect]
     Indication: HIV INFECTION
     Dosage: 200 NR
     Route: 048
     Dates: start: 20120806, end: 20120815
  2. KIVEXA [Suspect]
     Indication: HIV INFECTION
     Dosage: Daily Dose: 600/300
     Route: 048
     Dates: start: 20120806, end: 20120815
  3. PENICILLIN [Concomitant]
  4. CLINDAMYCIN [Concomitant]
  5. FLUCONAZOL [Concomitant]
  6. PENTACARINAT [Concomitant]
     Indication: PROPHYLAXIS
     Dosage: 300 NR
     Route: 055
     Dates: start: 20120808

REACTIONS (3)
  - Skin reaction [Recovered/Resolved]
  - Eczema [Recovered/Resolved]
  - Stevens-Johnson syndrome [Recovered/Resolved]
